FAERS Safety Report 14741120 (Version 1)
Quarter: 2018Q2

REPORT INFORMATION
  Report Type: Spontaneous
  Country: US (occurrence: US)
  Receive Date: 20180410
  Receipt Date: 20180410
  Transmission Date: 20180711
  Serious: Yes (Hospitalization)
  Sender: FDA-Public Use
  Company Number: US-SILVERGATE PHARMACEUTICALS, INC.-2018SIL00016

PATIENT
  Age: 73 Year
  Sex: Female

DRUGS (2)
  1. POLYETHYLENE GLYCOL BOWEL PREPARATION [Suspect]
     Active Substance: POLYETHYLENE GLYCOL 3350
     Dosage: 4 L, UNK
     Route: 065
  2. LISINOPRIL. [Suspect]
     Active Substance: LISINOPRIL
     Route: 065

REACTIONS (2)
  - Seizure [Unknown]
  - Inappropriate antidiuretic hormone secretion [Unknown]
